FAERS Safety Report 6151751-2 (Version None)
Quarter: 2009Q2

REPORT INFORMATION
  Report Type: 
  Country: None (occurrence: None)
  Receive Date: 20090410
  Receipt Date: 20090403
  Transmission Date: 20091009
  Serious: Yes (Hospitalization)
  Sender: FDA-Public Use
  Company Number: A0777972A

PATIENT
  Age: 53 Year
  Sex: Male
  Weight: 102.3 kg

DRUGS (3)
  1. AVANDIA [Suspect]
     Dosage: 4MG TWICE PER DAY
     Route: 048
     Dates: start: 20060701, end: 20070301
  2. AVANDAMET [Suspect]
     Route: 048
     Dates: start: 20070301, end: 20071201
  3. METFORMIN HCL [Concomitant]
     Dates: start: 20050101

REACTIONS (2)
  - CARDIAC FAILURE CONGESTIVE [None]
  - MYOCARDIAL INFARCTION [None]
